FAERS Safety Report 18289986 (Version 1)
Quarter: 2020Q3

REPORT INFORMATION
  Report Type: Report from Study
  Country: US (occurrence: US)
  Receive Date: 20200921
  Receipt Date: 20200921
  Transmission Date: 20201103
  Serious: Yes (Hospitalization)
  Sender: FDA-Public Use
  Company Number: US-CELGENEUS-USA-20200903785

PATIENT
  Age: 80 Year
  Sex: Female

DRUGS (16)
  1. DARZALEX [Concomitant]
     Active Substance: DARATUMUMAB
     Indication: PLASMA CELL MYELOMA
     Dosage: 16 MILLIGRAM/KILOGRAM
     Route: 041
     Dates: start: 20190620, end: 20190830
  2. DARZALEX [Concomitant]
     Active Substance: DARATUMUMAB
     Dosage: 16 MILLIGRAM/KILOGRAM
     Route: 041
     Dates: start: 2020
  3. DARZALEX [Concomitant]
     Active Substance: DARATUMUMAB
     Dosage: 16 MILLIGRAM/KILOGRAM
     Route: 041
     Dates: start: 20200206
  4. BORTEZOMIB. [Concomitant]
     Active Substance: BORTEZOMIB
     Indication: PRODUCT USED FOR UNKNOWN INDICATION
     Dosage: 1.3 MILLIGRAM/SQ. METER
     Route: 058
     Dates: start: 20130617, end: 20130822
  5. DEXAMETHASONE. [Concomitant]
     Active Substance: DEXAMETHASONE
     Indication: PRODUCT USED FOR UNKNOWN INDICATION
     Dosage: 5.7143 MILLIGRAM
     Route: 048
     Dates: start: 20130617, end: 20130822
  6. CYCLOPHOSPHAMIDE. [Concomitant]
     Active Substance: CYCLOPHOSPHAMIDE
     Indication: PRODUCT USED FOR UNKNOWN INDICATION
     Dosage: 42.8571 MILLIGRAM/SQ. METER
     Route: 048
     Dates: start: 20130617, end: 20130822
  7. DARZALEX [Concomitant]
     Active Substance: DARATUMUMAB
     Dosage: 16 MILLIGRAM/KILOGRAM
     Route: 041
     Dates: start: 20190927, end: 20200103
  8. DEXAMETHASONE. [Concomitant]
     Active Substance: DEXAMETHASONE
     Dosage: 20 MILLIGRAM
     Route: 048
     Dates: start: 20200305
  9. BORTEZOMIB. [Concomitant]
     Active Substance: BORTEZOMIB
     Dosage: .1857 MILLIGRAM/SQ. METER
     Route: 065
     Dates: start: 20130916, end: 20131216
  10. DEXAMETHASONE. [Concomitant]
     Active Substance: DEXAMETHASONE
     Dosage: 2.8571 MILLIGRAM
     Route: 041
     Dates: start: 20190620, end: 20190830
  11. REVLIMID [Suspect]
     Active Substance: LENALIDOMIDE
     Indication: PLASMA CELL MYELOMA
     Dosage: 10 MILLIGRAM
     Route: 048
     Dates: start: 20140124, end: 20190109
  12. DEXAMETHASONE. [Concomitant]
     Active Substance: DEXAMETHASONE
     Dosage: 5.7143 MILLIGRAM
     Route: 041
     Dates: start: 20190110, end: 20190524
  13. PREDNISONE. [Concomitant]
     Active Substance: PREDNISONE
     Indication: PRODUCT USED FOR UNKNOWN INDICATION
     Dosage: 2.5 MILLIGRAM
     Route: 048
     Dates: start: 20140127, end: 20190109
  14. KYPROLIS [Concomitant]
     Active Substance: CARFILZOMIB
     Indication: PRODUCT USED FOR UNKNOWN INDICATION
     Dosage: 20 MILLIGRAM/SQ. METER
     Route: 041
     Dates: start: 20190110, end: 20190524
  15. DEXAMETHASONE. [Concomitant]
     Active Substance: DEXAMETHASONE
     Dosage: 20 MILLIGRAM
     Route: 041
     Dates: start: 20190927, end: 20200108
  16. DEXAMETHASONE. [Concomitant]
     Active Substance: DEXAMETHASONE
     Dosage: 20 MILLIGRAM
     Route: 041
     Dates: start: 20200108, end: 20200304

REACTIONS (1)
  - Acute kidney injury [Not Recovered/Not Resolved]

NARRATIVE: CASE EVENT DATE: 20200912
